FAERS Safety Report 8512025 (Version 8)
Quarter: 2016Q4

REPORT INFORMATION
  Report Type: Spontaneous
  Country: US (occurrence: US)
  Receive Date: 20120413
  Receipt Date: 20161116
  Transmission Date: 20170207
  Serious: Yes (Other)
  Sender: FDA-Public Use
  Company Number: US-ASTRAZENECA-2011SE41375

PATIENT
  Age: 70 Year
  Sex: Female

DRUGS (15)
  1. NEXIUM [Suspect]
     Active Substance: ESOMEPRAZOLE MAGNESIUM
     Indication: ULCER
     Route: 048
  2. NEXIUM [Suspect]
     Active Substance: ESOMEPRAZOLE MAGNESIUM
     Indication: GASTROOESOPHAGEAL REFLUX DISEASE
     Route: 048
  3. BLADDER MEDICATION [Suspect]
     Active Substance: UNSPECIFIED INGREDIENT
     Indication: BLADDER DISORDER
     Route: 065
  4. NEXIUM [Suspect]
     Active Substance: ESOMEPRAZOLE MAGNESIUM
     Indication: ULCER
     Route: 048
  5. PRILOSEC [Suspect]
     Active Substance: OMEPRAZOLE MAGNESIUM
     Route: 048
  6. TAMOXIFEN [Suspect]
     Active Substance: TAMOXIFEN
     Indication: BREAST CANCER
     Route: 048
  7. NEXIUM [Suspect]
     Active Substance: ESOMEPRAZOLE MAGNESIUM
     Indication: GASTROOESOPHAGEAL REFLUX DISEASE
     Route: 048
  8. XANAX [Suspect]
     Active Substance: ALPRAZOLAM
     Indication: DEPRESSION
     Route: 065
  9. OTHER ANTIDEPRESSANTS [Suspect]
     Active Substance: UNSPECIFIED INGREDIENT
     Indication: DEPRESSION
     Route: 065
  10. PROSED [Concomitant]
  11. ZANTAC [Concomitant]
     Active Substance: RANITIDINE HYDROCHLORIDE
  12. LEVAQUIN [Concomitant]
     Active Substance: LEVOFLOXACIN
  13. SYNTHROID [Concomitant]
     Active Substance: LEVOTHYROXINE SODIUM
     Indication: THYROID DISORDER
  14. URIBEL [Concomitant]
     Active Substance: HYOSCYAMINE SULFATE\METHENAMINE\METHYLENE BLUE\PHENYL SALICYLATE\SODIUM PHOSPHATE, MONOBASIC, MONOHYDRATE
  15. PRILOSEC OTC [Suspect]
     Active Substance: OMEPRAZOLE MAGNESIUM
     Route: 048

REACTIONS (35)
  - Open fracture [Unknown]
  - Gastrooesophageal reflux disease [Unknown]
  - Bladder disorder [Unknown]
  - Pharyngeal erythema [Unknown]
  - Off label use [Unknown]
  - Compression fracture [Unknown]
  - Urethral spasm [Unknown]
  - Cystitis [Unknown]
  - Bruxism [Unknown]
  - Dyspnoea [Unknown]
  - Menopause [Unknown]
  - Headache [Unknown]
  - Heart rate increased [Unknown]
  - Feeling abnormal [Unknown]
  - Accident [Unknown]
  - Renal disorder [Unknown]
  - Oesophageal pain [Unknown]
  - Gastrointestinal disorder [Unknown]
  - Hot flush [Unknown]
  - Sinusitis [Unknown]
  - Temporomandibular joint syndrome [Unknown]
  - Memory impairment [Unknown]
  - Nervousness [Unknown]
  - Gastritis [Unknown]
  - Intervertebral disc protrusion [Unknown]
  - Constipation [Unknown]
  - Drug ineffective [Unknown]
  - Osteoporosis [Unknown]
  - Dyspepsia [Unknown]
  - Drug dose omission [Unknown]
  - Feeding disorder [Unknown]
  - Weight decreased [Unknown]
  - Urinary tract infection [Unknown]
  - Body temperature increased [Unknown]
  - Ulcer [Unknown]
